FAERS Safety Report 25974368 (Version 1)
Quarter: 2025Q4

REPORT INFORMATION
  Report Type: Spontaneous
  Country: CN (occurrence: CN)
  Receive Date: 20251029
  Receipt Date: 20251029
  Transmission Date: 20260118
  Serious: Yes (Hospitalization)
  Sender: ANI
  Company Number: None

PATIENT
  Age: 36 Year
  Sex: Male
  Weight: 62 kg

DRUGS (2)
  1. FLUVOXAMINE MALEATE [Suspect]
     Active Substance: FLUVOXAMINE MALEATE
     Indication: Depression
     Dosage: ANTIDEPRESSANT THERAPY
     Route: 048
     Dates: start: 20250907, end: 20251012
  2. VALPROATE SODIUM [Concomitant]
     Active Substance: VALPROATE SODIUM
     Indication: Emotional disorder
     Dosage: SUSTAINED-RELEASE TABLET
     Route: 048
     Dates: start: 20250907, end: 20251017

REACTIONS (1)
  - Tremor [Recovered/Resolved]

NARRATIVE: CASE EVENT DATE: 20251010
